FAERS Safety Report 5366622-9 (Version None)
Quarter: 2007Q2

REPORT INFORMATION
  Report Type: 
  Country: None (occurrence: None)
  Receive Date: 20070622
  Receipt Date: 20070611
  Transmission Date: 20071010
  Serious: Yes (Other)
  Sender: FDA-Public Use
  Company Number: IE-NOVOPROD-264327

PATIENT
  Sex: Female

DRUGS (3)
  1. VAGIFEM [Suspect]
     Dosage: 1 TAB, QD
     Route: 048
  2. ZOTON [Concomitant]
  3. IMIGRAN                            /01044801/ [Concomitant]
     Dosage: 100 MG, UNK
     Route: 048

REACTIONS (1)
  - MIGRAINE [None]
